FAERS Safety Report 25341337 (Version 1)
Quarter: 2025Q2

REPORT INFORMATION
  Report Type: Spontaneous
  Country: US (occurrence: None)
  Receive Date: 20250520
  Receipt Date: 20250520
  Transmission Date: 20250717
  Serious: Yes (Hospitalization)
  Sender: FDA-CTU
  Company Number: None

PATIENT
  Sex: Female

DRUGS (9)
  1. TERIFLUNOMIDE [Suspect]
     Active Substance: TERIFLUNOMIDE
     Indication: Multiple sclerosis
     Route: 048
     Dates: start: 20241002
  2. ALPRAZOLAM [Concomitant]
     Active Substance: ALPRAZOLAM
  3. ELIQUIS [Concomitant]
     Active Substance: APIXABAN
  4. LOSARTAN POTASSIUM [Concomitant]
     Active Substance: LOSARTAN POTASSIUM
  5. METOPROL SUC [Concomitant]
  6. PANTOPRAZOLE [Concomitant]
     Active Substance: PANTOPRAZOLE
  7. SIMVASTATIN [Concomitant]
     Active Substance: SIMVASTATIN
  8. TIZANIDINE HYDROCHLORIDE [Concomitant]
     Active Substance: TIZANIDINE HYDROCHLORIDE
  9. TRETINOIN [Concomitant]
     Active Substance: TRETINOIN

REACTIONS (2)
  - Cerebrovascular accident [None]
  - Drug hypersensitivity [None]
